FAERS Safety Report 9781176 (Version 1)
Quarter: 2013Q4

REPORT INFORMATION
  Report Type: Spontaneous
  Country: US (occurrence: None)
  Receive Date: 20131223
  Receipt Date: 20131223
  Transmission Date: 20140711
  Serious: Yes (Congenital Anomaly)
  Sender: FDA-Public Use
  Company Number: None

PATIENT
  Age: 29 Year
  Sex: Female
  Weight: 69.85 kg

DRUGS (1)
  1. ZOFRAN [Suspect]
     Indication: VOMITING
     Dosage: 1 PILL AS NEEDED AS NEEDED TAKEN BY MOUTH
     Route: 048
     Dates: start: 20030101, end: 20030924

REACTIONS (2)
  - Cleft palate [None]
  - Maternal drugs affecting foetus [None]
